FAERS Safety Report 8015331-6 (Version None)
Quarter: 2011Q4

REPORT INFORMATION
  Report Type: 
  Country: None (occurrence: None)
  Receive Date: 20111223
  Receipt Date: 20111209
  Transmission Date: 20120403
  Serious: Yes (Death)
  Sender: FDA-Public Use
  Company Number: 2011ST000513

PATIENT
  Age: 65 Year
  Sex: Male

DRUGS (1)
  1. MATULANE [Suspect]
     Indication: LYMPHOMA
     Dosage: 200 MG, QD, PO
     Route: 048
     Dates: start: 20110912

REACTIONS (1)
  - DEATH [None]
